FAERS Safety Report 19711400 (Version 1)
Quarter: 2021Q3

REPORT INFORMATION
  Report Type: Spontaneous
  Country: AU (occurrence: AU)
  Receive Date: 20210817
  Receipt Date: 20210817
  Transmission Date: 20211014
  Serious: Yes (Other)
  Sender: FDA-Public Use
  Company Number: AU-PFIZER INC-202101002084

PATIENT
  Age: 45 Year
  Sex: Female

DRUGS (11)
  1. FILGRASTIM [Suspect]
     Active Substance: FILGRASTIM
     Dosage: 300 UG, DAILY FOR 10 DAYS
  2. DOXORUBICIN [Concomitant]
     Active Substance: DOXORUBICIN
     Dosage: FOUR FURTHER CYCLES
  3. VINCRISTINE [Concomitant]
     Active Substance: VINCRISTINE
     Dosage: FOUR FURTHER CYCLES
  4. DOXORUBICIN [Concomitant]
     Active Substance: DOXORUBICIN
     Indication: T-CELL LYMPHOMA
     Dosage: TWO CYCLES
  5. ETOPOSIDE. [Concomitant]
     Active Substance: ETOPOSIDE
     Indication: T-CELL LYMPHOMA
     Dosage: UNK
  6. FILGRASTIM [Suspect]
     Active Substance: FILGRASTIM
     Indication: HAEMATOPOIETIC STEM CELL MOBILISATION
     Dosage: 300 UG  ON DAYS 6, 8, 10 AND 12 OF EACH CYCLE
  7. CYCLOPHOSPHAMIDE. [Concomitant]
     Active Substance: CYCLOPHOSPHAMIDE
     Indication: T-CELL LYMPHOMA
     Dosage: TWO CYCLES
  8. VINCRISTINE [Concomitant]
     Active Substance: VINCRISTINE
     Indication: T-CELL LYMPHOMA
     Dosage: TWO CYCLES
  9. CYCLOPHOSPHAMIDE. [Concomitant]
     Active Substance: CYCLOPHOSPHAMIDE
     Dosage: FOUR FURTHER CYCLES
  10. PREDNISOLONE. [Concomitant]
     Active Substance: PREDNISOLONE
     Indication: T-CELL LYMPHOMA
     Dosage: TWO CYCLES
  11. PREDNISOLONE. [Concomitant]
     Active Substance: PREDNISOLONE
     Dosage: FOUR FURTHER CYCLES

REACTIONS (2)
  - Familial haemophagocytic lymphohistiocytosis [Unknown]
  - Condition aggravated [Unknown]
